FAERS Safety Report 8576642-9 (Version None)
Quarter: 2012Q3

REPORT INFORMATION
  Report Type: 
  Country: None (occurrence: None)
  Receive Date: 20120807
  Receipt Date: 20120725
  Transmission Date: 20120928
  Serious: Yes (Hospitalization, Other)
  Sender: FDA-Public Use
  Company Number: US-ROCHE-1061230

PATIENT
  Sex: Female
  Weight: 81.72 kg

DRUGS (3)
  1. ACCUTANE [Suspect]
     Indication: ACNE
     Dates: start: 19841016, end: 19850601
  2. BIRTH CONTROL PILLS NOS [Concomitant]
  3. ERY-TAB [Concomitant]
     Route: 048
     Dates: start: 19810101

REACTIONS (9)
  - INFLAMMATORY BOWEL DISEASE [None]
  - DIVERTICULITIS [None]
  - APHTHOUS STOMATITIS [None]
  - COLITIS ULCERATIVE [None]
  - CROHN'S DISEASE [None]
  - DEPRESSION [None]
  - FISTULA [None]
  - ABSCESS [None]
  - OSTEOPENIA [None]
